FAERS Safety Report 10933685 (Version 2)
Quarter: 2015Q2

REPORT INFORMATION
  Report Type: Spontaneous
  Country: US (occurrence: US)
  Receive Date: 20150320
  Receipt Date: 20150526
  Transmission Date: 20150821
  Serious: No
  Sender: FDA-Public Use
  Company Number: US-JNJFOC-20140703325

PATIENT
  Age: 50 Year
  Sex: Male

DRUGS (1)
  1. RISPERDAL CONSTA [Suspect]
     Active Substance: RISPERIDONE
     Indication: SCHIZOPHRENIA
     Route: 030

REACTIONS (4)
  - Device breakage [Unknown]
  - Product quality issue [Recovered/Resolved]
  - Foreign body [Unknown]
  - Device malfunction [Unknown]

NARRATIVE: CASE EVENT DATE: 20140702
